FAERS Safety Report 16813836 (Version 1)
Quarter: 2019Q3

REPORT INFORMATION
  Report Type: Spontaneous
  Country: US (occurrence: US)
  Receive Date: 20190725
  Receipt Date: 20190725
  Transmission Date: 20191005
  Serious: Yes (Death)
  Sender: FDA-Public Use
  Company Number: None

PATIENT
  Age: 77 Year
  Sex: Male

DRUGS (1)
  1. CAPECITABINE  TAB [Suspect]
     Active Substance: CAPECITABINE
     Dosage: TAKE 3 TABLETS
     Route: 048
     Dates: start: 20190709, end: 20190720

REACTIONS (1)
  - Death [None]

NARRATIVE: CASE EVENT DATE: 20190720
